FAERS Safety Report 4848497-7 (Version None)
Quarter: 2005Q4

REPORT INFORMATION
  Report Type: 
  Country: None (occurrence: None)
  Receive Date: 20051115
  Receipt Date: 20050830
  Transmission Date: 20060501
  Serious: No
  Sender: FDA-Public Use
  Company Number: S05-USA-04195-01

PATIENT
  Sex: Female

DRUGS (2)
  1. NAMENDA [Suspect]
     Dosage: 10 MG ONCE PO
     Route: 048
  2. NAMENDA [Suspect]
     Dosage: 10 MG ONCE PO
     Route: 048
     Dates: start: 20050830, end: 20050830

REACTIONS (1)
  - MALAISE [None]
